FAERS Safety Report 23444073 (Version 6)
Quarter: 2025Q1

REPORT INFORMATION
  Report Type: Spontaneous
  Country: US (occurrence: US)
  Receive Date: 20240125
  Receipt Date: 20250102
  Transmission Date: 20250409
  Serious: Yes (Hospitalization)
  Sender: SANOFI AVENTIS
  Company Number: US-SA-SAC20240124000337

PATIENT
  Age: 12 Year
  Sex: Male
  Weight: 86.168 kg

DRUGS (5)
  1. ELOCTATE [Suspect]
     Active Substance: EFMOROCTOCOG ALFA
     Indication: Factor VIII deficiency
     Dosage: 4000 U (3600-4400) , Q4D
     Route: 042
     Dates: start: 201309
  2. ELOCTATE [Suspect]
     Active Substance: EFMOROCTOCOG ALFA
     Indication: Factor VIII deficiency
     Dosage: 4000 U (3600-4400) , Q4D
     Route: 042
     Dates: start: 201309
  3. ELOCTATE [Suspect]
     Active Substance: EFMOROCTOCOG ALFA
     Route: 042
     Dates: start: 201309
  4. ELOCTATE [Suspect]
     Active Substance: EFMOROCTOCOG ALFA
     Route: 042
     Dates: start: 201309
  5. ADVATE [Concomitant]
     Active Substance: ANTIHEMOPHILIC FACTOR, HUMAN RECOMBINANT
     Dosage: EVERY 12 HOURS FOR 36 HOURS

REACTIONS (9)
  - Wrist fracture [Recovered/Resolved]
  - Haemorrhage [Unknown]
  - Tibia fracture [Unknown]
  - Spontaneous haemorrhage [Not Recovered/Not Resolved]
  - Weight decreased [Recovering/Resolving]
  - Traumatic pain [Unknown]
  - Injury [Unknown]
  - Haemorrhage [Unknown]
  - Fall [Unknown]

NARRATIVE: CASE EVENT DATE: 20240101
